FAERS Safety Report 6169786-2 (Version None)
Quarter: 2009Q2

REPORT INFORMATION
  Report Type: 
  Country: None (occurrence: None)
  Receive Date: 20090428
  Receipt Date: 20090422
  Transmission Date: 20091009
  Serious: Yes (Hospitalization)
  Sender: FDA-Public Use
  Company Number: AU-AMGEN-US312875

PATIENT
  Sex: Female
  Weight: 60 kg

DRUGS (7)
  1. SENSIPAR [Suspect]
     Indication: HYPERPARATHYROIDISM SECONDARY
     Route: 048
     Dates: start: 20080826, end: 20080908
  2. LIPITOR [Suspect]
     Route: 048
     Dates: start: 20080826, end: 20080909
  3. EPREX [Concomitant]
     Route: 042
  4. MAREVAN [Concomitant]
     Route: 065
  5. CALCIUM/VITAMINS NOS [Concomitant]
     Route: 065
  6. SOMAC [Concomitant]
     Route: 065
  7. GLICLAZIDE [Concomitant]
     Route: 065

REACTIONS (4)
  - BLISTER [None]
  - RASH [None]
  - RASH VESICULAR [None]
  - STAPHYLOCOCCAL SKIN INFECTION [None]
